FAERS Safety Report 8890149 (Version 1)
Quarter: 2012Q4

REPORT INFORMATION
  Report Type: 
  Country: CA (occurrence: CA)
  Receive Date: 20121106
  Receipt Date: 20121106
  Transmission Date: 20130627
  Serious: Yes (Other)
  Sender: FDA-Public Use
  Company Number: PHHY2006CA009968

PATIENT
  Sex: Female

DRUGS (3)
  1. ZOMETA [Suspect]
     Indication: BREAST CANCER
     Dosage: 4 mg, Every 4 weeks
     Route: 042
     Dates: start: 20060201
  2. DILAUDID [Concomitant]
  3. DURAGESIC [Concomitant]

REACTIONS (3)
  - General physical health deterioration [Unknown]
  - Fracture [Unknown]
  - Vomiting [Unknown]
